FAERS Safety Report 11183244 (Version 1)
Quarter: 2015Q2

REPORT INFORMATION
  Report Type: Spontaneous
  Country: TW (occurrence: TW)
  Receive Date: 20150611
  Receipt Date: 20150611
  Transmission Date: 20150821
  Serious: Yes (Death, Hospitalization)
  Sender: FDA-Public Use
  Company Number: PHHY2015TW066624

PATIENT
  Age: 69 Year
  Sex: Male

DRUGS (1)
  1. BROMOCRIPTINE [Suspect]
     Active Substance: BROMOCRIPTINE
     Indication: PRODUCT USED FOR UNKNOWN INDICATION
     Dosage: 5 MG, TID
     Route: 065

REACTIONS (8)
  - Blood pressure decreased [Recovering/Resolving]
  - Respiratory failure [Fatal]
  - Sepsis [Fatal]
  - Stupor [Recovering/Resolving]
  - Atrial fibrillation [Recovering/Resolving]
  - Malnutrition [Fatal]
  - Pneumonia aspiration [Fatal]
  - Arrhythmia [Recovering/Resolving]
